FAERS Safety Report 16289410 (Version 1)
Quarter: 2019Q2

REPORT INFORMATION
  Report Type: Spontaneous
  Country: US (occurrence: US)
  Receive Date: 20190508
  Receipt Date: 20190508
  Transmission Date: 20190711
  Serious: Yes (Hospitalization)
  Sender: FDA-Public Use
  Company Number: None

PATIENT
  Age: 80 Year
  Sex: Female
  Weight: 64.8 kg

DRUGS (1)
  1. ACTEMRA [Suspect]
     Active Substance: TOCILIZUMAB
     Indication: TEMPORAL ARTERITIS
     Dosage: ?          OTHER FREQUENCY:TWO INJECTIONS;?
     Route: 058
     Dates: start: 20180312

REACTIONS (5)
  - Facial paralysis [None]
  - Hypercalcaemia [None]
  - Malaise [None]
  - Mental status changes [None]
  - Liver function test increased [None]

NARRATIVE: CASE EVENT DATE: 20180314
